FAERS Safety Report 23694124 (Version 1)
Quarter: 2024Q2

REPORT INFORMATION
  Report Type: Spontaneous
  Country: US (occurrence: US)
  Receive Date: 20240401
  Receipt Date: 20240401
  Transmission Date: 20240716
  Serious: No
  Sender: FDA-Public Use
  Company Number: US-BRISTOL-MYERS SQUIBB COMPANY-2024-051416

PATIENT
  Age: 70 Year
  Sex: Male
  Weight: 67.59 kg

DRUGS (12)
  1. LENALIDOMIDE [Suspect]
     Active Substance: LENALIDOMIDE
     Indication: Plasma cell myeloma
     Dosage: FREQUENCY- 21/28 CYCLE
     Route: 048
     Dates: start: 20230414
  2. LENALIDOMIDE [Suspect]
     Active Substance: LENALIDOMIDE
     Dates: start: 20230731
  3. LENALIDOMIDE [Suspect]
     Active Substance: LENALIDOMIDE
     Dates: start: 20230828
  4. LENALIDOMIDE [Suspect]
     Active Substance: LENALIDOMIDE
     Dates: start: 20230922
  5. LENALIDOMIDE [Suspect]
     Active Substance: LENALIDOMIDE
     Dates: start: 20231019
  6. LENALIDOMIDE [Suspect]
     Active Substance: LENALIDOMIDE
     Dates: start: 20231128
  7. LENALIDOMIDE [Suspect]
     Active Substance: LENALIDOMIDE
     Dates: start: 20231227
  8. LENALIDOMIDE [Suspect]
     Active Substance: LENALIDOMIDE
     Dates: start: 20240205
  9. LENALIDOMIDE [Suspect]
     Active Substance: LENALIDOMIDE
     Dates: start: 20240308
  10. LENALIDOMIDE [Suspect]
     Active Substance: LENALIDOMIDE
     Dates: start: 20230519
  11. BACLOFEN [Concomitant]
     Active Substance: BACLOFEN
     Indication: Product used for unknown indication
  12. ONDANSETRON [Concomitant]
     Active Substance: ONDANSETRON
     Indication: Product used for unknown indication

REACTIONS (1)
  - White blood cell count decreased [Recovering/Resolving]

NARRATIVE: CASE EVENT DATE: 20240330
